FAERS Safety Report 8178623-6 (Version None)
Quarter: 2012Q1

REPORT INFORMATION
  Report Type: 
  Country: None (occurrence: None)
  Receive Date: 20120301
  Receipt Date: 20120228
  Transmission Date: 20120608
  Serious: No
  Sender: FDA-Public Use
  Company Number: US-MERCK-1202USA01924

PATIENT
  Age: 86 Year
  Sex: Female

DRUGS (1)
  1. JANUVIA [Suspect]
     Indication: DIABETES MELLITUS
     Route: 048
     Dates: start: 20110906, end: 20120126

REACTIONS (3)
  - VISUAL ACUITY REDUCED [None]
  - OEDEMA [None]
  - EYE OEDEMA [None]
